FAERS Safety Report 21447336 (Version 1)
Quarter: 2022Q4

REPORT INFORMATION
  Report Type: Report from Study
  Country: KR (occurrence: KR)
  Receive Date: 20221012
  Receipt Date: 20221012
  Transmission Date: 20230113
  Serious: Yes (Other)
  Sender: FDA-Public Use
  Company Number: KR-002147023-NVSC2022KR228455

PATIENT

DRUGS (21)
  1. RUXOLITINIB [Suspect]
     Active Substance: RUXOLITINIB
     Indication: Myelofibrosis
     Dosage: UNK
     Route: 065
     Dates: start: 20171125
  2. RUXOLITINIB [Suspect]
     Active Substance: RUXOLITINIB
     Dosage: 20 MG, BID
     Route: 048
     Dates: start: 20220711
  3. CADUET [Concomitant]
     Active Substance: AMLODIPINE BESYLATE\ATORVASTATIN CALCIUM
     Indication: Hypertension
     Dosage: UNK UNK, QD (DOSE: 5/20MG/DAY)
     Route: 048
     Dates: start: 20170914
  4. KANARB [Concomitant]
     Indication: Hypertension
     Dosage: 30 MG, QD
     Route: 048
     Dates: start: 20190914
  5. CILOSTAZOL [Concomitant]
     Active Substance: CILOSTAZOL
     Indication: Cerebrovascular accident
     Dosage: 100 MG, QD
     Route: 048
     Dates: start: 20170914
  6. BUSPIRONE [Concomitant]
     Active Substance: BUSPIRONE HYDROCHLORIDE
     Indication: Prophylaxis
     Dosage: 2 DOSAGE FORM, QD (2TAB PER DAY)
     Route: 048
     Dates: start: 20170914
  7. POLAPREZINC [Concomitant]
     Active Substance: POLAPREZINC
     Indication: Prophylaxis
     Dosage: 2 DOSAGE FORM, QD
     Route: 048
     Dates: start: 20170914
  8. FOLIC ACID [Concomitant]
     Active Substance: FOLIC ACID
     Indication: Prophylaxis
     Dosage: 2 MG, QD
     Route: 048
     Dates: start: 20180416
  9. ARONAMIN C PLUS [Concomitant]
     Indication: Prophylaxis
     Dosage: 2 DOSAGE FORM, QD
     Route: 048
     Dates: start: 20200103
  10. GASTER [Concomitant]
     Active Substance: FAMOTIDINE
     Indication: Prophylaxis
     Dosage: 20 MG, QD
     Route: 048
     Dates: start: 20201214
  11. GASTER [Concomitant]
     Active Substance: FAMOTIDINE
     Dosage: UNK (1AMPULE/DAY)
     Route: 042
     Dates: start: 20220711, end: 20220711
  12. PHENIRAMINE [Concomitant]
     Active Substance: PHENIRAMINE
     Indication: Prophylaxis
     Dosage: UNK UNK, QD (1AMPULE/DAY)
     Route: 042
     Dates: start: 20220711, end: 20220711
  13. COMBICIN [Concomitant]
     Indication: Pneumonia
     Dosage: 18 G, QD
     Route: 042
     Dates: start: 20171204, end: 20171208
  14. AVELOX [Concomitant]
     Active Substance: MOXIFLOXACIN HYDROCHLORIDE
     Indication: Pneumonia
     Dosage: 400 MG, QD
     Route: 042
     Dates: start: 20171204, end: 20171228
  15. PROBIOTICS NOS [Concomitant]
     Active Substance: PROBIOTICS NOS
     Indication: Prophylaxis
     Dosage: 2 DOSAGE FORM, QD
     Route: 048
     Dates: start: 20171208, end: 20180110
  16. PIPERACILLIN SODIUM\TAZOBACTAM SODIUM [Concomitant]
     Active Substance: PIPERACILLIN SODIUM\TAZOBACTAM SODIUM
     Indication: Pneumonia
     Dosage: 18 G, QD
     Route: 042
     Dates: start: 20171214, end: 20171227
  17. PANTOPRAZOLE SODIUM [Concomitant]
     Active Substance: PANTOPRAZOLE SODIUM
     Indication: Prophylaxis
     Dosage: 1 DOSAGE FORM, QD
     Route: 048
     Dates: start: 20171211, end: 20180110
  18. STILLEN [Concomitant]
     Indication: Prophylaxis
     Dosage: 3 DOSAGE FORM, QD
     Route: 048
     Dates: start: 20171211, end: 20180110
  19. GANAKHAN [Concomitant]
     Indication: Prophylaxis
     Dosage: 3 DOSAGE FORM, QD
     Route: 048
     Dates: start: 20171211, end: 20180110
  20. LEVODRO [Concomitant]
     Indication: Pneumonia
     Dosage: 3 DOSAGE FORM, QD
     Route: 048
     Dates: start: 20171211, end: 20180110
  21. COUGH SYRUP [Concomitant]
     Active Substance: DEXTROMETHORPHAN HYDROBROMIDE\GUAIFENESIN
     Indication: Pneumonia
     Dosage: 60 ML, QD
     Route: 048
     Dates: start: 20171211, end: 20180110

REACTIONS (3)
  - Anaemia [Not Recovered/Not Resolved]
  - Enterocolitis [Recovered/Resolved]
  - Autoimmune pancreatitis [Not Recovered/Not Resolved]

NARRATIVE: CASE EVENT DATE: 20171204
